FAERS Safety Report 6413028-7 (Version None)
Quarter: 2009Q4

REPORT INFORMATION
  Report Type: 
  Country: None (occurrence: None)
  Receive Date: 20091023
  Receipt Date: 20091023
  Transmission Date: 20100525
  Serious: Yes (Hospitalization, Other)
  Sender: FDA-Public Use
  Company Number: None

PATIENT
  Age: 28 Year
  Sex: Female
  Weight: 58.0604 kg

DRUGS (2)
  1. SLIM XTREME UNAVAILABLE CURENTLY ANABOLIC NUTRITION [Suspect]
     Indication: ENERGY INCREASED
     Dosage: 1 CAPSULES TWICE A DAY 5 DAYS A WEEK PO
     Route: 048
     Dates: start: 20090716, end: 20091022
  2. SLIM XTREME UNAVAILABLE CURENTLY ANABOLIC NUTRITION [Suspect]
     Indication: METABOLIC DISORDER
     Dosage: 1 CAPSULES TWICE A DAY 5 DAYS A WEEK PO
     Route: 048
     Dates: start: 20090716, end: 20091022

REACTIONS (22)
  - ABDOMINAL PAIN UPPER [None]
  - AGGRESSION [None]
  - CHILLS [None]
  - ERYTHEMA [None]
  - FEELING HOT [None]
  - FEELING JITTERY [None]
  - HEADACHE [None]
  - HYPERHIDROSIS [None]
  - HYPOMENORRHOEA [None]
  - LIBIDO INCREASED [None]
  - MYALGIA [None]
  - NERVOUSNESS [None]
  - OEDEMA PERIPHERAL [None]
  - OIL ACNE [None]
  - OLIGOMENORRHOEA [None]
  - PERONEAL NERVE PALSY [None]
  - PRODUCT QUALITY ISSUE [None]
  - PULSE PRESSURE DECREASED [None]
  - SENSORY LOSS [None]
  - SKIN DISORDER [None]
  - SUICIDAL IDEATION [None]
  - THROMBOSIS [None]
